FAERS Safety Report 7462205-5 (Version None)
Quarter: 2011Q2

REPORT INFORMATION
  Report Type: 
  Country: None (occurrence: None)
  Receive Date: 20110506
  Receipt Date: 20110428
  Transmission Date: 20111010
  Serious: Yes (Hospitalization)
  Sender: FDA-Public Use
  Company Number: GB-SANOFI-AVENTIS-2011SA026221

PATIENT
  Age: 73 Year
  Sex: Female
  Weight: 45 kg

DRUGS (5)
  1. LEFLUNOMIDE [Suspect]
     Indication: RHEUMATOID ARTHRITIS
     Route: 048
  2. CALCICHEW D3 [Concomitant]
     Indication: OSTEOPENIA
     Route: 048
  3. FERROUS FUMARATE [Concomitant]
     Indication: ANAEMIA
     Route: 048
  4. PREDNISOLONE [Concomitant]
     Indication: RHEUMATOID ARTHRITIS
     Route: 048
  5. LANSOPRAZOLE [Concomitant]
     Indication: PROPHYLAXIS
     Route: 048

REACTIONS (5)
  - PNEUMONIA [None]
  - SPUTUM DISCOLOURED [None]
  - BRONCHIECTASIS [None]
  - COUGH [None]
  - DYSPNOEA [None]
